FAERS Safety Report 6569251-4 (Version None)
Quarter: 2010Q1

REPORT INFORMATION
  Report Type: 
  Country: None (occurrence: None)
  Receive Date: 20100201
  Receipt Date: 20100201
  Transmission Date: 20100710
  Serious: Yes (Other)
  Sender: FDA-Public Use
  Company Number: None

PATIENT
  Sex: Female
  Weight: 73 kg

DRUGS (1)
  1. DOXIL [Suspect]
     Dates: start: 20100107, end: 20100107

REACTIONS (4)
  - BURNING SENSATION [None]
  - ERYTHEMA [None]
  - OCULAR HYPERAEMIA [None]
  - PRURITUS [None]
